FAERS Safety Report 8810126 (Version 2)
Quarter: 2012Q4

REPORT INFORMATION
  Report Type: 
  Country: US (occurrence: US)
  Receive Date: 20120926
  Receipt Date: 20121226
  Transmission Date: 20130627
  Serious: Yes (Life-Threatening, Hospitalization, Other)
  Sender: FDA-Public Use
  Company Number: US-CELGENEUS-163-21880-12082216

PATIENT
  Age: 72 Year
  Sex: Male

DRUGS (1)
  1. REVLIMID [Suspect]
     Indication: MYELOFIBROSIS
     Dosage: 5 Milligram
     Route: 048
     Dates: start: 20120721

REACTIONS (5)
  - Furuncle [Recovered/Resolved]
  - Rash generalised [Recovered/Resolved]
  - Red blood cell count decreased [Recovered/Resolved]
  - No therapeutic response [Recovered/Resolved]
  - Myelofibrosis [Recovered/Resolved]
